FAERS Safety Report 5015361-2 (Version None)
Quarter: 2006Q2

REPORT INFORMATION
  Report Type: 
  Country: None (occurrence: None)
  Receive Date: 20060601
  Receipt Date: 20060523
  Transmission Date: 20061013
  Serious: Yes (Hospitalization)
  Sender: FDA-Public Use
  Company Number: US-JNJFOC-20060305823

PATIENT
  Sex: Female
  Weight: 120.66 kg

DRUGS (13)
  1. FENTANYL TRANSDERMAL SYSTEM [Suspect]
     Route: 062
  2. FENTANYL TRANSDERMAL SYSTEM [Suspect]
     Route: 062
  3. DILTIAZEM [Concomitant]
     Route: 048
  4. LISINOPRIL [Concomitant]
     Route: 048
  5. FUROSEMIDE [Concomitant]
     Indication: DIURETIC THERAPY
     Route: 048
  6. LEVOTHYROXINE SODIUM [Concomitant]
     Indication: THYROID DISORDER
     Route: 048
  7. ZOLOFT [Concomitant]
     Indication: SCREAMING
     Route: 048
  8. LIPITOR [Concomitant]
     Route: 048
  9. NAPROSYN [Concomitant]
     Indication: ARTHRITIS
     Route: 048
  10. METFORMIN [Concomitant]
     Route: 048
  11. GUAIFENEX [Concomitant]
     Route: 048
  12. GUAIFENEX [Concomitant]
     Route: 048
  13. GUAIFENEX [Concomitant]
     Dosage: 30-600 CR, TWO TIMES PER DAY ORAL
     Route: 048

REACTIONS (4)
  - DRUG ADMINISTRATION ERROR [None]
  - DRUG WITHDRAWAL SYNDROME [None]
  - NERVE COMPRESSION [None]
  - TREMOR [None]
